FAERS Safety Report 23628748 (Version 2)
Quarter: 2024Q1

REPORT INFORMATION
  Report Type: Spontaneous
  Country: FR (occurrence: FR)
  Receive Date: 20240313
  Receipt Date: 20240327
  Transmission Date: 20240410
  Serious: Yes (Other)
  Sender: FDA-Public Use
  Company Number: FR-PFIZER INC-PV202400020416

PATIENT
  Age: 77 Year
  Sex: Female

DRUGS (3)
  1. PALBOCICLIB [Suspect]
     Active Substance: PALBOCICLIB
     Indication: Breast cancer
     Dosage: UNK
  2. SPIRONOLACTONE [Concomitant]
     Active Substance: SPIRONOLACTONE
     Dosage: 12.5 MG, 1X/DAY
  3. FLECAINIDE [Concomitant]
     Active Substance: FLECAINIDE
     Dosage: 100 (UNIT NOT PROVIDED), 1X/DAY

REACTIONS (15)
  - Neutrophil count decreased [Unknown]
  - Anaemia [Not Recovered/Not Resolved]
  - Enterostomy [Unknown]
  - Dizziness [Recovered/Resolved]
  - Balance disorder [Unknown]
  - Gait deviation [Unknown]
  - Vision blurred [Recovered/Resolved]
  - Dysgeusia [Recovered/Resolved]
  - Palpitations [Recovered/Resolved]
  - Abdominal pain [Recovered/Resolved]
  - Oesophageal pain [Recovered/Resolved]
  - Dry skin [Recovered/Resolved]
  - Stomatitis [Unknown]
  - Fatigue [Recovered/Resolved]
  - Diarrhoea [Unknown]
